FAERS Safety Report 4590655-3 (Version None)
Quarter: 2005Q1

REPORT INFORMATION
  Report Type: 
  Country: None (occurrence: None)
  Receive Date: 20050218
  Receipt Date: 20050218
  Transmission Date: 20050727
  Serious: Yes (Life-Threatening)
  Sender: FDA-Public Use
  Company Number: None

PATIENT
  Age: 3 Year
  Sex: Female

DRUGS (2)
  1. PROTOPIC [Suspect]
     Indication: DIFFUSE LARGE B-CELL LYMPHOMA
     Dates: start: 20021001, end: 20040701
  2. ELIDEL [Suspect]
     Dates: start: 20021001, end: 20040701

REACTIONS (1)
  - DIFFUSE LARGE B-CELL LYMPHOMA STAGE IV [None]
